FAERS Safety Report 7985132-3 (Version None)
Quarter: 2011Q4

REPORT INFORMATION
  Report Type: 
  Country: None (occurrence: None)
  Receive Date: 20111216
  Receipt Date: 20111202
  Transmission Date: 20120403
  Serious: Yes (Other)
  Sender: FDA-Public Use
  Company Number: PHHY2011PL107028

PATIENT
  Age: 48 Year
  Sex: Male

DRUGS (5)
  1. CERTICAN [Suspect]
     Indication: RENAL TRANSPLANT
     Dosage: 1.5 MG, BID
  2. MYFORTIC [Suspect]
     Indication: RENAL TRANSPLANT
     Dosage: 500 MG, BID
  3. STEROIDS NOS [Concomitant]
  4. TACROLIMUS [Concomitant]
     Dosage: 1X3 MG
  5. PREDNISONE TAB [Concomitant]
     Dosage: 5 MG, UNK

REACTIONS (3)
  - PNEUMONIA [None]
  - PANCYTOPENIA [None]
  - PYREXIA [None]
